FAERS Safety Report 17390329 (Version 2)
Quarter: 2020Q1

REPORT INFORMATION
  Report Type: Spontaneous
  Country: US (occurrence: US)
  Receive Date: 20200207
  Receipt Date: 20200309
  Transmission Date: 20200409
  Serious: No
  Sender: FDA-Public Use
  Company Number: US-JNJFOC-20200205115

PATIENT
  Age: 39 Year
  Sex: Female
  Weight: 56.3 kg

DRUGS (1)
  1. STELARA [Suspect]
     Active Substance: USTEKINUMAB
     Indication: PSORIASIS
     Route: 058

REACTIONS (2)
  - Product complaint [Unknown]
  - Underdose [Unknown]

NARRATIVE: CASE EVENT DATE: 20200201
